FAERS Safety Report 19021606 (Version 1)
Quarter: 2021Q1

REPORT INFORMATION
  Report Type: Spontaneous
  Country: US (occurrence: US)
  Receive Date: 20210317
  Receipt Date: 20210317
  Transmission Date: 20210420
  Serious: No
  Sender: FDA-Public Use
  Company Number: US-FRESENIUS KABI-FK202102557

PATIENT
  Sex: Male

DRUGS (1)
  1. NEBUPENT [Suspect]
     Active Substance: PENTAMIDINE ISETHIONATE
     Indication: PNEUMOCYSTIS JIROVECII PNEUMONIA
     Dosage: UNKNOWN

REACTIONS (2)
  - Dysgeusia [Recovered/Resolved]
  - Oropharyngeal pain [Recovered/Resolved]
